FAERS Safety Report 9362918 (Version 1)
Quarter: 2013Q2

REPORT INFORMATION
  Report Type: Spontaneous
  Country: US (occurrence: None)
  Receive Date: 20130621
  Receipt Date: 20130621
  Transmission Date: 20140414
  Serious: No
  Sender: FDA-Public Use
  Company Number: None

PATIENT
  Age: 56 Year
  Sex: Male

DRUGS (2)
  1. RIBAVIRIN [Suspect]
     Indication: HEPATITIS C
     Route: 048
     Dates: start: 20130212
  2. PEGASYS [Suspect]
     Indication: HEPATITIS C
     Dosage: SQ
     Dates: start: 20130212

REACTIONS (6)
  - Headache [None]
  - Dyspnoea [None]
  - Pain [None]
  - Feeling abnormal [None]
  - Tinnitus [None]
  - Lung neoplasm malignant [None]
